FAERS Safety Report 14596073 (Version 2)
Quarter: 2018Q1

REPORT INFORMATION
  Report Type: Spontaneous
  Country: US (occurrence: US)
  Receive Date: 20180303
  Receipt Date: 20180315
  Transmission Date: 20180509
  Serious: No
  Sender: FDA-Public Use
  Company Number: US-GLAXOSMITHKLINE-US2018032717

PATIENT
  Sex: Male

DRUGS (1)
  1. ADVAIR DISKUS [Suspect]
     Active Substance: FLUTICASONE PROPIONATE\SALMETEROL XINAFOATE
     Indication: PRODUCT USED FOR UNKNOWN INDICATION
     Dosage: UNK

REACTIONS (9)
  - Oral mucosal discolouration [Unknown]
  - Feeding disorder [Unknown]
  - Oral candidiasis [Unknown]
  - Dyspnoea [Unknown]
  - Vocal cord disorder [Unknown]
  - Oral mucosal eruption [Unknown]
  - Tongue disorder [Unknown]
  - Oral disorder [Unknown]
  - Weight decreased [Unknown]
